FAERS Safety Report 17686044 (Version 2)
Quarter: 2020Q2

REPORT INFORMATION
  Report Type: Report from Study
  Country: US (occurrence: US)
  Receive Date: 20200420
  Receipt Date: 20200511
  Transmission Date: 20200714
  Serious: Yes (Death, Hospitalization)
  Sender: FDA-Public Use
  Company Number: US-ACTELION-A-NJ2019-199060

PATIENT
  Age: 38 Year
  Sex: Female
  Weight: 74.38 kg

DRUGS (8)
  1. TYVASO [Concomitant]
     Active Substance: TREPROSTINIL
  2. VELETRI [Suspect]
     Active Substance: EPOPROSTENOL
     Dosage: 5 NG/KG, PER MIN
     Route: 042
  3. VELETRI [Suspect]
     Active Substance: EPOPROSTENOL
     Dosage: 8 NG/KG, PER MIN
     Route: 042
  4. VELETRI [Suspect]
     Active Substance: EPOPROSTENOL
     Dosage: 10 NG/KG, PER MIN
     Route: 042
  5. VELETRI [Suspect]
     Active Substance: EPOPROSTENOL
     Dosage: 11 NG/KG, PER MIN
     Route: 042
  6. VELETRI [Suspect]
     Active Substance: EPOPROSTENOL
     Indication: PULMONARY ARTERIAL HYPERTENSION
     Dosage: 12 NG/KG, PER MIN
     Route: 042
  7. LETAIRIS [Concomitant]
     Active Substance: AMBRISENTAN
  8. ADCIRCA [Concomitant]
     Active Substance: TADALAFIL

REACTIONS (17)
  - Oxygen saturation [Fatal]
  - Coronavirus infection [Unknown]
  - Lethargy [Unknown]
  - Fatigue [Not Recovered/Not Resolved]
  - Rash pruritic [Unknown]
  - Unevaluable event [Unknown]
  - Oropharyngeal pain [Unknown]
  - Cough [Unknown]
  - Diarrhoea [Not Recovered/Not Resolved]
  - Labile blood pressure [Fatal]
  - Nausea [Unknown]
  - Nasopharyngitis [Unknown]
  - Rash erythematous [Unknown]
  - Flushing [Unknown]
  - Headache [Unknown]
  - Migraine [Unknown]
  - Skin laceration [Unknown]

NARRATIVE: CASE EVENT DATE: 2020
